FAERS Safety Report 8140492 (Version 2)
Quarter: 2013Q3

REPORT INFORMATION
  Report Type: Report from Study
  Country: US (occurrence: US)
  Receive Date: 20110916
  Receipt Date: 20130822
  Transmission Date: 20140515
  Serious: Yes (Hospitalization, Other)
  Sender: FDA-Public Use
  Company Number: US-BRISTOL-MYERS SQUIBB COMPANY-16055329

PATIENT
  Age: 51 Year
  Sex: Female
  Weight: 52.6 kg

DRUGS (2)
  1. CARBOPLATIN [Suspect]
     Indication: NON-SMALL CELL LUNG CANCER
     Dosage: RECENT INF 29AUG11,17OCT11 (1145MG).
     Dates: start: 20110724
  2. TAXOL [Suspect]
     Indication: NON-SMALL CELL LUNG CANCER
     Dosage: RECENT INF 29AUG11,17OCT11(578MG).
     Dates: start: 20110725

REACTIONS (8)
  - Dyspnoea [Recovering/Resolving]
  - Fatigue [Recovering/Resolving]
  - Pain [Recovering/Resolving]
  - Dysphagia [Recovering/Resolving]
  - Oesophagitis [Recovering/Resolving]
  - Nausea [Recovering/Resolving]
  - Sinus tachycardia [Recovered/Resolved]
  - Anaemia [Recovering/Resolving]
